FAERS Safety Report 6211521-3 (Version None)
Quarter: 2009Q2

REPORT INFORMATION
  Report Type: 
  Country: None (occurrence: None)
  Receive Date: 20090528
  Receipt Date: 20090518
  Transmission Date: 20091009
  Serious: Yes (Hospitalization)
  Sender: FDA-Public Use
  Company Number: IDA-00210

PATIENT
  Age: 49 Year
  Sex: Female

DRUGS (3)
  1. PROPRANOLOL [Suspect]
     Indication: HYPERTENSION
     Dosage: 40 MG DAILY ORAL
     Route: 048
  2. BROMAZEPAM [Concomitant]
  3. ARIMIDEX [Concomitant]

REACTIONS (4)
  - ALOPECIA [None]
  - BREAST CANCER FEMALE [None]
  - WEIGHT DECREASED [None]
  - WEIGHT INCREASED [None]
